FAERS Safety Report 9103222 (Version 1)
Quarter: 2013Q1

REPORT INFORMATION
  Report Type: Spontaneous
  Country: GB (occurrence: None)
  Receive Date: 20130125
  Receipt Date: 20130125
  Transmission Date: 20140127
  Serious: Yes (Death)
  Sender: FDA-Public Use
  Company Number: AUR-APL-2013-00816

PATIENT
  Age: 48 Year
  Sex: Male

DRUGS (6)
  1. FLUOXETINE [Suspect]
     Indication: ANXIETY
     Route: 048
  2. ZAPONEX [Suspect]
     Indication: PRODUCT USED FOR UNKNOWN INDICATION
     Route: 048
     Dates: start: 20081124, end: 20120924
  3. FLUOXETINE [Concomitant]
  4. PREGABALIN(PREGABALIN) [Concomitant]
  5. SULPRIDE(LEVOSULPIRIDE) [Concomitant]
  6. VENTOLIN(SALBUTAMOL) [Concomitant]

REACTIONS (3)
  - Myocardial infarction [None]
  - Cardiac failure acute [None]
  - Ventricular hypertrophy [None]
